FAERS Safety Report 8161636-8 (Version None)
Quarter: 2012Q1

REPORT INFORMATION
  Report Type: 
  Country: None (occurrence: None)
  Receive Date: 20120224
  Receipt Date: 20120222
  Transmission Date: 20120608
  Serious: Yes (Other)
  Sender: FDA-Public Use
  Company Number: US-PFIZER INC-2012047497

PATIENT
  Sex: Female
  Weight: 58 kg

DRUGS (4)
  1. CHANTIX [Suspect]
     Indication: SMOKING CESSATION THERAPY
     Dosage: 0.5 MG, 1X/DAY
     Route: 048
     Dates: end: 20100201
  2. ACETYLSALICYLIC ACID [Concomitant]
     Dosage: UNK
  3. CALCIUM [Concomitant]
     Dosage: UNK
  4. FEMARA [Concomitant]
     Indication: BREAST CANCER
     Dosage: UNK

REACTIONS (1)
  - BREAST CANCER [None]
